FAERS Safety Report 5031587-6 (Version None)
Quarter: 2006Q2

REPORT INFORMATION
  Report Type: 
  Country: None (occurrence: None)
  Receive Date: 20060621
  Receipt Date: 20060615
  Transmission Date: 20061013
  Serious: Yes (Hospitalization)
  Sender: FDA-Public Use
  Company Number: 451262

PATIENT
  Age: 73 Year
  Sex: Male

DRUGS (4)
  1. ARTIST [Suspect]
     Indication: HYPERTENSION
     Dosage: 10MG PER DAY
     Route: 048
     Dates: start: 20060216, end: 20060227
  2. UBRETID [Suspect]
     Indication: NEUROGENIC BLADDER
     Dosage: 5MG TWICE PER DAY
     Route: 048
     Dates: start: 20060216, end: 20060217
  3. BUFFERIN [Concomitant]
     Indication: CEREBRAL INFARCTION
     Dosage: 81MG PER DAY
     Route: 048
     Dates: start: 20060216, end: 20060227
  4. MUCOSTA [Concomitant]
     Indication: GASTRITIS
     Dosage: 100MG THREE TIMES PER DAY
     Route: 048
     Dates: start: 20060216, end: 20060227

REACTIONS (7)
  - BRADYCARDIA [None]
  - DEHYDRATION [None]
  - DEPRESSED LEVEL OF CONSCIOUSNESS [None]
  - DIARRHOEA [None]
  - HEART RATE DECREASED [None]
  - HYPOTENSION [None]
  - OVERDOSE [None]
